FAERS Safety Report 8061366-7 (Version None)
Quarter: 2012Q1

REPORT INFORMATION
  Report Type: 
  Country: None (occurrence: None)
  Receive Date: 20120120
  Receipt Date: 20120113
  Transmission Date: 20120608
  Serious: Yes (Other)
  Sender: FDA-Public Use
  Company Number: US-ASTRAZENECA-2011SE65118

PATIENT
  Age: 62 Year
  Sex: Male
  Weight: 86.6 kg

DRUGS (7)
  1. TOPROL-XL [Suspect]
     Route: 048
     Dates: start: 20110301
  2. TIAZAC [Concomitant]
     Indication: TACHYCARDIA
     Route: 048
  3. LOSARTAN POTASSIUM [Concomitant]
     Indication: HYPERTENSION
     Route: 048
  4. VALIUM [Concomitant]
     Indication: ANXIETY
     Route: 048
  5. NEXIUM [Concomitant]
     Route: 048
  6. TIAZAC [Concomitant]
     Indication: ATRIAL FIBRILLATION
     Route: 048
  7. TOPROL-XL [Suspect]
     Indication: TACHYCARDIA
     Dosage: GENERIC
     Route: 048
     Dates: start: 20101101, end: 20110201

REACTIONS (3)
  - OFF LABEL USE [None]
  - LIMB INJURY [None]
  - MUSCULOSKELETAL DISCOMFORT [None]
